FAERS Safety Report 9267480 (Version 2)
Quarter: 2013Q2

REPORT INFORMATION
  Report Type: Spontaneous
  Country: JP (occurrence: JP)
  Receive Date: 20130502
  Receipt Date: 20130513
  Transmission Date: 20140414
  Serious: Yes (Other)
  Sender: FDA-Public Use
  Company Number: JP-PFIZER INC-2013129109

PATIENT
  Age: 47 Year
  Sex: Female

DRUGS (3)
  1. LATANOPROST [Suspect]
     Indication: OCULAR HYPERTENSION
     Dosage: UNK
     Route: 047
     Dates: start: 200708
  2. LATANOPROST [Suspect]
     Indication: GLAUCOMA
  3. TRAVOPROST [Suspect]
     Indication: OCULAR HYPERTENSION
     Dosage: UNK
     Route: 047

REACTIONS (1)
  - Keratoconus [Unknown]
